FAERS Safety Report 8256665-X (Version None)
Quarter: 2012Q2

REPORT INFORMATION
  Report Type: 
  Country: None (occurrence: None)
  Receive Date: 20120403
  Receipt Date: 20120330
  Transmission Date: 20120825
  Serious: Yes (Hospitalization, Disabling)
  Sender: FDA-Public Use
  Company Number: US-MERCK-1106USA00663

PATIENT
  Age: 67 Year
  Sex: Female
  Weight: 67 kg

DRUGS (9)
  1. VITAMIN D (UNSPECIFIED) [Concomitant]
     Route: 065
     Dates: start: 20010101
  2. SYNTHROID [Concomitant]
     Indication: HYPOTHYROIDISM
     Route: 065
     Dates: start: 20010101
  3. THYROID [Concomitant]
     Route: 065
     Dates: start: 19710101
  4. CALCIUM (UNSPECIFIED) [Concomitant]
     Route: 065
     Dates: start: 20010101
  5. CHONDROITIN SULFATE SODIUM AND GLUCOSAMINE SULFATE [Concomitant]
     Route: 065
     Dates: start: 20010101
  6. FOSAMAX [Suspect]
     Indication: OSTEOPOROSIS
     Route: 048
     Dates: start: 20040101, end: 20051219
  7. FOSAMAX [Suspect]
     Indication: OSTEOPENIA
     Route: 048
     Dates: start: 20040101, end: 20051219
  8. FOSAMAX PLUS D [Suspect]
     Indication: OSTEOPENIA
     Route: 048
     Dates: start: 20060218, end: 20091217
  9. FOSAMAX PLUS D [Suspect]
     Indication: OSTEOPOROSIS
     Route: 048
     Dates: start: 20060218, end: 20091217

REACTIONS (33)
  - NOCTURIA [None]
  - HYPERTENSION [None]
  - DEVICE FAILURE [None]
  - ARTHRITIS [None]
  - BURSITIS [None]
  - SPINAL COLUMN STENOSIS [None]
  - FRACTURE NONUNION [None]
  - LOW TURNOVER OSTEOPATHY [None]
  - INTERVERTEBRAL DISC DEGENERATION [None]
  - GAIT DISTURBANCE [None]
  - BLOOD CHOLESTEROL INCREASED [None]
  - OSTEOPOROSIS [None]
  - JOINT SWELLING [None]
  - BLOOD PRESSURE INCREASED [None]
  - NAUSEA [None]
  - MYALGIA [None]
  - MUSCULAR WEAKNESS [None]
  - JAW DISORDER [None]
  - HYPERCHOLESTEROLAEMIA [None]
  - TOOTH FRACTURE [None]
  - SPINAL DISORDER [None]
  - GASTROOESOPHAGEAL REFLUX DISEASE [None]
  - FALL [None]
  - HYPOAESTHESIA [None]
  - FEMUR FRACTURE [None]
  - ANXIETY [None]
  - VOMITING [None]
  - TOOTH DISORDER [None]
  - SPINAL HAEMANGIOMA [None]
  - FACET JOINT SYNDROME [None]
  - IMPAIRED HEALING [None]
  - HYPERLIPIDAEMIA [None]
  - TOOTH ABSCESS [None]
